FAERS Safety Report 13559084 (Version 1)
Quarter: 2017Q2

REPORT INFORMATION
  Report Type: Other
  Country: JP (occurrence: JP)
  Receive Date: 20170518
  Receipt Date: 20170518
  Transmission Date: 20170830
  Serious: Yes (Other)
  Sender: FDA-Public Use
  Company Number: JP-LUPIN (EUROPE) LIMITED-2016-04909

PATIENT
  Age: 36 Year
  Sex: Male

DRUGS (11)
  1. ZYPREXA [Concomitant]
     Active Substance: OLANZAPINE
     Indication: SCHIZOPHRENIA
     Dosage: 2 DF,QD,
     Route: 048
     Dates: start: 20150801, end: 20160425
  2. QUETIAPINE FUMARATE. [Suspect]
     Active Substance: QUETIAPINE FUMARATE
     Dosage: 150 MG,UNK,UNKNOWN
     Route: 048
     Dates: start: 20160426
  3. FLUNITRAZEPAM 1 MG [AMEL] [Concomitant]
     Indication: INSOMNIA
     Dosage: 1 DF,QD,
     Route: 048
     Dates: start: 20161021
  4. QUETIAPINE FUMARATE. [Suspect]
     Active Substance: QUETIAPINE FUMARATE
     Dosage: 75 MG,UNK,UNKNOWN
     Route: 048
     Dates: start: 20151126
  5. QUETIAPINE FUMARATE. [Suspect]
     Active Substance: QUETIAPINE FUMARATE
     Indication: SCHIZOPHRENIA
     Dosage: 100 MG,UNK,UNKNOWN
     Route: 048
     Dates: start: 20160607, end: 20160628
  6. IMIDAPRIL TABLET 5 MG [OHARA] [Concomitant]
     Indication: HYPERTENSION
     Dosage: 2 DF,QD,
     Route: 048
     Dates: start: 20160619
  7. SULPIRIDE TABLET 50 MG [AMEL] [Concomitant]
     Active Substance: SULPIRIDE
     Indication: SCHIZOPHRENIA
     Dosage: 1 DF,TID,
     Route: 048
     Dates: start: 20140802
  8. RISPERIDONE TABLET 1 MG [YOSHITOMI] [Concomitant]
     Active Substance: RISPERIDONE
     Indication: SCHIZOPHRENIA
     Dosage: 1 DF,BID,
     Route: 048
     Dates: start: 20160524
  9. QUETIAPINE FUMARATE. [Suspect]
     Active Substance: QUETIAPINE FUMARATE
     Indication: SCHIZOPHRENIA
     Dosage: BEFORE SLEEPING
     Route: 048
     Dates: start: 20140718
  10. AZELNIDIPINE TABLET 16 MG [NP] [Concomitant]
     Indication: HYPERTENSION
     Dosage: 1 DF,QD,
     Route: 048
     Dates: start: 20160123
  11. OMEPRAZOLE TABLET 20 MG [NICHI-IKO] [Concomitant]
     Indication: GASTRITIS
     Dosage: 1 DF,QD,
     Route: 048
     Dates: start: 20140816

REACTIONS (1)
  - Muscle spasms [Recovered/Resolved]

NARRATIVE: CASE EVENT DATE: 201606
